FAERS Safety Report 6131748-9 (Version None)
Quarter: 2009Q1

REPORT INFORMATION
  Report Type: 
  Country: None (occurrence: None)
  Receive Date: 20090325
  Receipt Date: 20090317
  Transmission Date: 20090719
  Serious: Yes (Other)
  Sender: FDA-Public Use
  Company Number: US-ROCHE-622539

PATIENT
  Sex: Female
  Weight: 83.9 kg

DRUGS (2)
  1. CAPECITABINE [Suspect]
     Indication: GASTROINTESTINAL CARCINOMA
     Dosage: DOSAGE REPORTED AS: 2=500 MG/DAY
     Route: 065
     Dates: start: 20080718
  2. GEMZAR [Concomitant]

REACTIONS (1)
  - DISEASE PROGRESSION [None]
